FAERS Safety Report 4805996-1 (Version None)
Quarter: 2005Q4

REPORT INFORMATION
  Report Type: 
  Country: None (occurrence: None)
  Receive Date: 20051019
  Receipt Date: 20051004
  Transmission Date: 20060501
  Serious: Yes (Hospitalization)
  Sender: FDA-Public Use
  Company Number: USA0508105032

PATIENT
  Age: 86 Year
  Sex: Female

DRUGS (27)
  1. FORTEO [Suspect]
     Indication: OSTEOPOROSIS
     Dosage: 20 UG DAY
     Dates: start: 20040928, end: 20050726
  2. LASIX [Concomitant]
  3. MAG-OX (MAGNESIUM OXIDE) [Concomitant]
  4. SLO-BID [Concomitant]
  5. FERROUS SULFATE TAB [Concomitant]
  6. SINGULAIR [Concomitant]
  7. NEXIUM [Concomitant]
  8. DOCUSATE SODIUM [Concomitant]
  9. COMBIVENT [Concomitant]
  10. ADVAIR DISKUS 100/50 [Concomitant]
  11. POTASSIUM CHLORIDE [Concomitant]
  12. PREDNISONE [Concomitant]
  13. MULTI-VITAMIN [Concomitant]
  14. FOSAMAX [Concomitant]
  15. PREMARIN [Concomitant]
  16. ALBUTEROL [Concomitant]
  17. DIFLUCAN [Concomitant]
  18. FLONASE [Concomitant]
  19. DUONEB [Concomitant]
  20. LIPITOR [Concomitant]
  21. SPIRIVA [Concomitant]
  22. ZELNORM [Concomitant]
  23. XOPENEX [Concomitant]
  24. SYNTHROID [Concomitant]
  25. TYLENOL W/ CODEINE NO. 3 [Concomitant]
  26. K-DUR 10 [Concomitant]
  27. ASTHMADEX [Concomitant]

REACTIONS (9)
  - ASTHENIA [None]
  - BLOOD ALBUMIN DECREASED [None]
  - CONFUSIONAL STATE [None]
  - COUGH [None]
  - DEHYDRATION [None]
  - FATIGUE [None]
  - HYPERCALCAEMIA [None]
  - HYPERSOMNIA [None]
  - SLEEP DISORDER [None]
